FAERS Safety Report 8331044-5 (Version None)
Quarter: 2012Q2

REPORT INFORMATION
  Report Type: 
  Country: None (occurrence: None)
  Receive Date: 20120502
  Receipt Date: 20120409
  Transmission Date: 20120825
  Serious: No
  Sender: FDA-Public Use
  Company Number: US-AMGEN-USASP2012022316

PATIENT
  Age: 66 Year
  Sex: Female

DRUGS (2)
  1. ENBREL [Suspect]
     Indication: RHEUMATOID ARTHRITIS
     Dosage: UNK
  2. RUXOLITINIB [Concomitant]

REACTIONS (4)
  - NAUSEA [None]
  - BACK PAIN [None]
  - FEELING HOT [None]
  - ABDOMINAL PAIN UPPER [None]
